FAERS Safety Report 7545258-5 (Version None)
Quarter: 2011Q2

REPORT INFORMATION
  Report Type: 
  Country: None (occurrence: None)
  Receive Date: 20110607
  Receipt Date: 20110523
  Transmission Date: 20111010
  Serious: Yes (Death, Hospitalization)
  Sender: FDA-Public Use
  Company Number: AUR-APL-2011-01880

PATIENT
  Age: 19 Year
  Sex: Male

DRUGS (2)
  1. AMLODIPINE [Suspect]
     Indication: SUICIDE ATTEMPT
     Dosage: 700MG-ONCE-ORAL
     Route: 048
  2. LISINOPRIL [Suspect]
     Indication: SUICIDE ATTEMPT
     Dosage: 30TABLETS-ONCE-ORAL
     Route: 048

REACTIONS (5)
  - SUICIDE ATTEMPT [None]
  - PULSE ABSENT [None]
  - HAEMODYNAMIC INSTABILITY [None]
  - HYPOTENSION [None]
  - INCORRECT DOSE ADMINISTERED [None]
